FAERS Safety Report 11766257 (Version 2)
Quarter: 2015Q4

REPORT INFORMATION
  Report Type: Spontaneous
  Country: US (occurrence: US)
  Receive Date: 20151123
  Receipt Date: 20151204
  Transmission Date: 20160304
  Serious: Yes (Hospitalization)
  Sender: FDA-Public Use
  Company Number: US-AUROBINDO-AUR-APL-2015-10467

PATIENT
  Age: 59 Year
  Sex: Female

DRUGS (1)
  1. TRIMETHOPRIM+SULFAMETHOXAZOLE [Suspect]
     Active Substance: SULFAMETHOXAZOLE\TRIMETHOPRIM
     Indication: SUBCUTANEOUS ABSCESS
     Route: 065

REACTIONS (13)
  - Diffuse alveolar damage [Recovered/Resolved]
  - Conjunctivitis [Recovered/Resolved]
  - Tachypnoea [Recovered/Resolved]
  - Interstitial lung disease [Recovered/Resolved]
  - Pyrexia [Recovered/Resolved]
  - Hypoxia [Recovered/Resolved]
  - Organising pneumonia [Recovered/Resolved]
  - Dyspnoea [Recovered/Resolved]
  - Productive cough [Recovered/Resolved]
  - Breath sounds abnormal [Recovered/Resolved]
  - Acute lung injury [Recovered/Resolved]
  - Rash pruritic [Recovered/Resolved]
  - Tachycardia [Recovered/Resolved]
